FAERS Safety Report 23276987 (Version 1)
Quarter: 2023Q4

REPORT INFORMATION
  Report Type: Spontaneous
  Country: TR (occurrence: TR)
  Receive Date: 20231208
  Receipt Date: 20231208
  Transmission Date: 20240110
  Serious: Yes (Other)
  Sender: FDA-Public Use
  Company Number: TR-BAYER-2023A170830

PATIENT
  Age: 33 Year
  Sex: Male

DRUGS (2)
  1. STIVARGA [Suspect]
     Active Substance: REGORAFENIB
     Dosage: 160 MG, QD
     Dates: start: 202309
  2. DECORT [Concomitant]
     Dosage: UNK

REACTIONS (5)
  - Fluid retention [None]
  - Stomatitis [None]
  - Fatigue [None]
  - Asthenia [None]
  - Nausea [None]
